FAERS Safety Report 8438387-5 (Version None)
Quarter: 2012Q2

REPORT INFORMATION
  Report Type: 
  Country: None (occurrence: None)
  Receive Date: 20120614
  Receipt Date: 20120607
  Transmission Date: 20120825
  Serious: Yes (Hospitalization, Other)
  Sender: FDA-Public Use
  Company Number: US-MERCK-1203USA02452

PATIENT
  Age: 58 Year
  Sex: Female
  Weight: 62 kg

DRUGS (5)
  1. CORTICOSTEROIDS (UNSPECIFIED) [Suspect]
     Route: 065
  2. FOSAMAX [Suspect]
     Route: 048
     Dates: start: 20080101
  3. FOSAMAX [Suspect]
     Indication: OSTEOPOROSIS
     Route: 048
     Dates: start: 20100101
  4. FOSAMAX [Suspect]
     Route: 048
     Dates: start: 20020101
  5. FOSAMAX PLUS D [Suspect]
     Route: 048

REACTIONS (46)
  - FEMUR FRACTURE [None]
  - HYPERCALCAEMIA [None]
  - FIBROMYALGIA [None]
  - VITAMIN D DEFICIENCY [None]
  - LIVER FUNCTION TEST ABNORMAL [None]
  - DYSPNOEA [None]
  - FALL [None]
  - OSTEOPOROSIS [None]
  - OSTEOARTHRITIS [None]
  - LOW TURNOVER OSTEOPATHY [None]
  - SJOGREN'S SYNDROME [None]
  - KYPHOSIS [None]
  - JOINT INJURY [None]
  - INCREASED TENDENCY TO BRUISE [None]
  - CYST [None]
  - CONSTIPATION [None]
  - ADVERSE DRUG REACTION [None]
  - BARTHOLIN'S CYST [None]
  - BLOOD PARATHYROID HORMONE INCREASED [None]
  - NECK PAIN [None]
  - WEIGHT INCREASED [None]
  - VENOUS INSUFFICIENCY [None]
  - JOINT EFFUSION [None]
  - ANAEMIA [None]
  - CORONARY ARTERY DISEASE [None]
  - HEADACHE [None]
  - TENOSYNOVITIS [None]
  - CHEST PAIN [None]
  - INTERVERTEBRAL DISC DEGENERATION [None]
  - FOOT FRACTURE [None]
  - BACK PAIN [None]
  - ESSENTIAL TREMOR [None]
  - HYPERGLYCAEMIA [None]
  - SINUS TACHYCARDIA [None]
  - DIABETES MELLITUS [None]
  - CARPAL TUNNEL DECOMPRESSION [None]
  - ARTHROPOD STING [None]
  - MYALGIA [None]
  - APPENDIX DISORDER [None]
  - HIP FRACTURE [None]
  - PARATHYROID TUMOUR BENIGN [None]
  - MUSCLE SPASMS [None]
  - ABDOMINAL PAIN LOWER [None]
  - NEPHROLITHIASIS [None]
  - HYPERPARATHYROIDISM [None]
  - ANXIETY [None]
